FAERS Safety Report 11793899 (Version 1)
Quarter: 2015Q4

REPORT INFORMATION
  Report Type: Spontaneous
  Country: US (occurrence: None)
  Receive Date: 20151201
  Receipt Date: 20151201
  Transmission Date: 20160305
  Serious: Yes (Hospitalization)
  Sender: FDA-Public Use
  Company Number: None

PATIENT
  Age: 78 Year
  Sex: Female
  Weight: 77.11 kg

DRUGS (10)
  1. ESTRADIOL. [Concomitant]
     Active Substance: ESTRADIOL
  2. WARFARIN [Concomitant]
     Active Substance: WARFARIN
  3. DILTIAZEM (CARDIZEM) [Concomitant]
  4. CALTRATE [Concomitant]
     Active Substance: CALCIUM CARBONATE
  5. XARELTO [Suspect]
     Active Substance: RIVAROXABAN
     Indication: ANTICOAGULANT THERAPY
     Dosage: BY MOUTH, 1 PILL.
     Route: 048
     Dates: start: 20150204, end: 20150515
  6. PRAVASTATIN [Concomitant]
     Active Substance: PRAVASTATIN\PRAVASTATIN SODIUM
  7. VITAMIN B12 [Concomitant]
     Active Substance: CYANOCOBALAMIN
  8. XARELTO [Suspect]
     Active Substance: RIVAROXABAN
     Indication: ATRIAL FIBRILLATION
     Dosage: BY MOUTH, 1 PILL.
     Route: 048
     Dates: start: 20150204, end: 20150515
  9. SOTALOL. [Concomitant]
     Active Substance: SOTALOL
  10. CENTRUM SILVER [Concomitant]
     Active Substance: MINERALS\VITAMINS

REACTIONS (10)
  - Skin disorder [None]
  - Abasia [None]
  - Pruritus generalised [None]
  - Cystitis [None]
  - Back pain [None]
  - Pollakiuria [None]
  - Renal pain [None]
  - Fatigue [None]
  - Increased tendency to bruise [None]
  - Insomnia [None]

NARRATIVE: CASE EVENT DATE: 20150204
